FAERS Safety Report 25952854 (Version 1)
Quarter: 2025Q4

REPORT INFORMATION
  Report Type: Spontaneous
  Country: JP (occurrence: JP)
  Receive Date: 20251023
  Receipt Date: 20251023
  Transmission Date: 20260117
  Serious: Yes (Other)
  Sender: Haleon PLC
  Company Number: JP-002147023-NVSJ2024JP004126

PATIENT
  Age: 66 Year
  Sex: Female

DRUGS (2)
  1. DICLOFENAC [Suspect]
     Active Substance: DICLOFENAC
     Indication: Antiinflammatory therapy
     Dosage: TIME INTERVAL: AS NECESSARY: DAILY DOSE(S): UNK, WIDELY USED FROM THE WAIST TO THE LEG)
     Route: 050
  2. DICLOFENAC [Suspect]
     Active Substance: DICLOFENAC
     Indication: Analgesic therapy
     Dosage: TIME INTERVAL: AS NECESSARY: DAILY DOSE(S): UNK, DOSE INCREASED, WIDELY USED FROM THE WAIST TO TH...
     Route: 050

REACTIONS (5)
  - Lumbar vertebral fracture [Unknown]
  - Aspartate aminotransferase increased [Unknown]
  - Alanine aminotransferase increased [Unknown]
  - Gamma-glutamyltransferase increased [Unknown]
  - Back pain [Unknown]
